FAERS Safety Report 25153386 (Version 1)
Quarter: 2025Q2

REPORT INFORMATION
  Report Type: Spontaneous
  Country: US (occurrence: US)
  Receive Date: 20250403
  Receipt Date: 20250403
  Transmission Date: 20250716
  Serious: No
  Sender: ALKEM
  Company Number: US-ALKEM LABORATORIES LIMITED-US-ALKEM-2024-08164

PATIENT
  Sex: Female

DRUGS (1)
  1. CEFDINIR [Suspect]
     Active Substance: CEFDINIR
     Indication: Urinary tract infection
     Dosage: 300 MILLIGRAM, BID
     Route: 048
     Dates: start: 20240408

REACTIONS (2)
  - Diarrhoea [Not Recovered/Not Resolved]
  - Abdominal pain [Not Recovered/Not Resolved]

NARRATIVE: CASE EVENT DATE: 20240410
